FAERS Safety Report 7221553-4 (Version None)
Quarter: 2011Q1

REPORT INFORMATION
  Report Type: 
  Country: None (occurrence: None)
  Receive Date: 20110112
  Receipt Date: 20110103
  Transmission Date: 20110831
  Serious: Yes (Other)
  Sender: FDA-Public Use
  Company Number: PHHY2011US00633

PATIENT
  Sex: Male

DRUGS (2)
  1. HERBAL PREPARATION [Concomitant]
     Indication: ARTHRALGIA
     Dosage: UNK
  2. GILENYA [Suspect]
     Indication: MULTIPLE SCLEROSIS
     Dosage: 0.5 MG, QD
     Route: 048
     Dates: start: 20101203

REACTIONS (4)
  - PYREXIA [None]
  - MOVEMENT DISORDER [None]
  - DYSSTASIA [None]
  - HEART RATE INCREASED [None]
